FAERS Safety Report 20078923 (Version 1)
Quarter: 2021Q4

REPORT INFORMATION
  Report Type: Spontaneous
  Country: US (occurrence: US)
  Receive Date: 20211117
  Receipt Date: 20211117
  Transmission Date: 20220303
  Serious: No
  Sender: FDA-Public Use
  Company Number: US-BEH-2021138411

PATIENT
  Sex: Male

DRUGS (1)
  1. PRIVIGEN [Suspect]
     Active Substance: HUMAN IMMUNOGLOBULIN G
     Indication: Atrial fibrillation
     Dosage: 60 GRAM, DAILY FOR 4 DAYS ONE TIME DOSE
     Route: 042

REACTIONS (3)
  - White blood cell count decreased [Unknown]
  - No adverse event [Unknown]
  - Off label use [Unknown]
